FAERS Safety Report 5846382-5 (Version None)
Quarter: 2008Q3

REPORT INFORMATION
  Report Type: 
  Country: None (occurrence: None)
  Receive Date: 20080815
  Receipt Date: 20080804
  Transmission Date: 20090109
  Serious: Yes (Hospitalization)
  Sender: FDA-Public Use
  Company Number: BR-AMGEN-US301283

PATIENT
  Sex: Female

DRUGS (2)
  1. ENBREL [Suspect]
     Indication: RHEUMATOID ARTHRITIS
     Route: 058
     Dates: start: 20070101
  2. YELLOW FEVER VACCINE [Concomitant]
     Indication: IMMUNISATION
     Dosage: UNSPECIFIED
     Route: 051
     Dates: start: 20080601, end: 20080601

REACTIONS (3)
  - CORNEAL DISORDER [None]
  - LUNG DISORDER [None]
  - MALAISE [None]
